FAERS Safety Report 6329793-3 (Version None)
Quarter: 2009Q3

REPORT INFORMATION
  Report Type: 
  Country: None (occurrence: None)
  Receive Date: 20090826
  Receipt Date: 20090824
  Transmission Date: 20100115
  Serious: Yes (Death, Hospitalization)
  Sender: FDA-Public Use
  Company Number: PHHY2009CN35719

PATIENT
  Age: 76 Year
  Sex: Female

DRUGS (2)
  1. DICLOFENAC [Suspect]
     Indication: HEADACHE
     Dosage: 50 MG, TID
     Route: 065
     Dates: start: 20001125
  2. DICLOFENAC [Suspect]
     Indication: ARTHRALGIA

REACTIONS (8)
  - ABDOMINAL PAIN UPPER [None]
  - GASTRIC PERFORATION [None]
  - HAEMATEMESIS [None]
  - HAEMORRHAGE [None]
  - MELAENA [None]
  - PERITONITIS [None]
  - SEPTIC SHOCK [None]
  - VOMITING [None]
